FAERS Safety Report 7536961-1 (Version None)
Quarter: 2011Q2

REPORT INFORMATION
  Report Type: 
  Country: None (occurrence: None)
  Receive Date: 20110609
  Receipt Date: 20110602
  Transmission Date: 20111010
  Serious: Yes (Hospitalization, Other)
  Sender: FDA-Public Use
  Company Number: US-US-EMD SERONO, INC.-7063076

PATIENT
  Sex: Female
  Weight: 78 kg

DRUGS (3)
  1. REBIF [Suspect]
     Indication: MULTIPLE SCLEROSIS
     Route: 058
     Dates: start: 20081201
  2. A LOT OF UNSPECIFIED MEDICATIONS [Concomitant]
  3. A PILL FOR HER SODIUM [Concomitant]
     Indication: BLOOD SODIUM DECREASED

REACTIONS (5)
  - DEVICE MALFUNCTION [None]
  - BLOOD SODIUM DECREASED [None]
  - OXYGEN SATURATION DECREASED [None]
  - INJECTION SITE HAEMATOMA [None]
  - PNEUMONIA [None]
